FAERS Safety Report 9529532 (Version 1)
Quarter: 2013Q2

REPORT INFORMATION
  Report Type: Spontaneous
  Country: US (occurrence: None)
  Receive Date: 20130402
  Receipt Date: 20130402
  Transmission Date: 20140414
  Serious: Yes (Other)
  Sender: FDA-Public Use
  Company Number: RB-49972-2013

PATIENT
  Age: 25 Year
  Sex: Male

DRUGS (2)
  1. SUBOXONE 8 MG [Suspect]
     Indication: DRUG DEPENDENCE
     Dosage: 24 MG SUBOXONE FILM
     Dates: start: 20120425
  2. KLONOPIN [Concomitant]

REACTIONS (1)
  - Acute hepatic failure [None]
